FAERS Safety Report 6108623-9 (Version None)
Quarter: 2009Q1

REPORT INFORMATION
  Report Type: 
  Country: None (occurrence: None)
  Receive Date: 20090305
  Receipt Date: 20090224
  Transmission Date: 20090719
  Serious: Yes (Other)
  Sender: FDA-Public Use
  Company Number: OSCN-NO-0902S-0121

PATIENT
  Age: 60 Year
  Sex: Male
  Weight: 75 kg

DRUGS (6)
  1. OMNISCAN [Suspect]
     Indication: RENAL TRANSPLANT
     Dosage: 15 ML, SINGLE DOSE, I.V.
     Route: 042
     Dates: start: 20000106, end: 20000106
  2. FUROSEMIDE [Concomitant]
  3. AMLODIPINE [Concomitant]
  4. METOPROLOL TARTRATE [Concomitant]
  5. ATORVASTATIN CALCIUM [Concomitant]
  6. EPOETIN ALFA [Concomitant]

REACTIONS (1)
  - NEPHROGENIC SYSTEMIC FIBROSIS [None]
